FAERS Safety Report 9107054 (Version 1)
Quarter: 2013Q1

REPORT INFORMATION
  Report Type: Spontaneous
  Country: US (occurrence: US)
  Receive Date: 20130221
  Receipt Date: 20130221
  Transmission Date: 20140127
  Serious: Yes (Hospitalization)
  Sender: FDA-Public Use
  Company Number: US-BAYER-2013-019751

PATIENT
  Age: 31 Year
  Sex: Female
  Weight: 77.55 kg

DRUGS (4)
  1. YAZ [Suspect]
  2. GIANVI [Suspect]
  3. PREDNISONE [Concomitant]
  4. TRAMADOL [Concomitant]

REACTIONS (1)
  - Pulmonary embolism [Recovered/Resolved]
